FAERS Safety Report 4331242-1 (Version None)
Quarter: 2004Q1

REPORT INFORMATION
  Report Type: 
  Country: None (occurrence: None)
  Receive Date: 20040331
  Receipt Date: 20040319
  Transmission Date: 20041129
  Serious: Yes (Death, Hospitalization)
  Sender: FDA-Public Use
  Company Number: 04P-155-0254260-00

PATIENT
  Age: 5 Year
  Sex: Female
  Weight: 15 kg

DRUGS (8)
  1. KALETRA [Suspect]
     Indication: HIV INFECTION
     Dosage: 1.75 M L, 2 IN 1 D, PER ORAL
     Route: 048
  2. ZIDOVUDINE [Concomitant]
  3. LAMIVUDINE [Concomitant]
  4. ZITHROMAX [Concomitant]
  5. ACYCLOVIR [Concomitant]
  6. NYSTATIN [Concomitant]
  7. BACTRIM [Concomitant]
  8. DEXTRIFERRON [Concomitant]

REACTIONS (3)
  - HEADACHE [None]
  - INTRAVENTRICULAR HAEMORRHAGE [None]
  - LOSS OF CONSCIOUSNESS [None]
